FAERS Safety Report 9612516 (Version 1)
Quarter: 2013Q4

REPORT INFORMATION
  Report Type: Spontaneous
  Country: US (occurrence: US)
  Receive Date: 20131010
  Receipt Date: 20131010
  Transmission Date: 20140711
  Serious: No
  Sender: FDA-Public Use
  Company Number: US-BAYER-2013-109303

PATIENT
  Age: 88 Year
  Sex: Female

DRUGS (1)
  1. BETAPACE [Suspect]
     Indication: HEART RATE INCREASED
     Dosage: 80 MG, BID
     Route: 048

REACTIONS (1)
  - Inappropriate schedule of drug administration [None]
